FAERS Safety Report 17272204 (Version 1)
Quarter: 2020Q1

REPORT INFORMATION
  Report Type: Other
  Country: IN (occurrence: IN)
  Receive Date: 20200115
  Receipt Date: 20200115
  Transmission Date: 20200409
  Serious: Yes (Death)
  Sender: FDA-Public Use
  Company Number: IN-SUNRISE PHARMACEUTICAL, INC.-2079041

PATIENT
  Age: 23 Year
  Sex: Female

DRUGS (1)
  1. FOLIC ACID. [Suspect]
     Active Substance: FOLIC ACID
     Indication: SUICIDE ATTEMPT
     Route: 048

REACTIONS (7)
  - Renal tubular necrosis [Fatal]
  - Exposure during pregnancy [Fatal]
  - Hepatic necrosis [Fatal]
  - Toxicity to various agents [Fatal]
  - Overdose [Fatal]
  - Suicide attempt [Fatal]
  - Gastrointestinal perforation [Fatal]
